FAERS Safety Report 8041304-3 (Version None)
Quarter: 2012Q1

REPORT INFORMATION
  Report Type: 
  Country: None (occurrence: None)
  Receive Date: 20120112
  Receipt Date: 20120109
  Transmission Date: 20120608
  Serious: No
  Sender: FDA-Public Use
  Company Number: US-PFIZER INC-2012008178

PATIENT
  Sex: Male
  Weight: 81.633 kg

DRUGS (6)
  1. PAXIL [Concomitant]
     Dosage: 40 MG, DAILY
     Route: 048
  2. LOVASTATIN [Concomitant]
     Indication: BLOOD CHOLESTEROL ABNORMAL
     Dosage: 40 MG, DAILY
  3. CHANTIX [Suspect]
     Indication: SMOKING CESSATION THERAPY
     Dosage: UNK
     Route: 048
  4. METFORMIN [Concomitant]
     Indication: DIABETES MELLITUS
     Dosage: 850 MG, 3X/DAY
  5. INSULIN [Concomitant]
     Indication: DIABETES MELLITUS
     Dosage: 15 MG, 2X/DAY
  6. ACTOS [Concomitant]
     Indication: DIABETES MELLITUS
     Dosage: 30 MG, DAILY
     Route: 048

REACTIONS (1)
  - ABNORMAL DREAMS [None]
